FAERS Safety Report 14381147 (Version 4)
Quarter: 2018Q1

REPORT INFORMATION
  Report Type: Spontaneous
  Country: US (occurrence: US)
  Receive Date: 20180112
  Receipt Date: 20180201
  Transmission Date: 20180509
  Serious: Yes (Other)
  Sender: FDA-Public Use
  Company Number: PHHY2018US002672

PATIENT
  Age: 68 Year
  Sex: Female
  Weight: 68 kg

DRUGS (6)
  1. GENTAMICIN SULFATE (ALC) [Suspect]
     Active Substance: GENTAMICIN SULFATE
     Indication: POSTOPERATIVE CARE
  2. BSS [Suspect]
     Active Substance: CALCIUM CHLORIDE\MAGNESIUM CHLORIDE\POTASSIUM CHLORIDE\SODIUM ACETATE\SODIUM CHLORIDE\SODIUM CITRATE
     Indication: EYE IRRIGATION
     Dosage: UNK, ONCE/SINGLE
     Route: 031
     Dates: start: 20171213, end: 20171213
  3. LIDOCAINE. [Suspect]
     Active Substance: LIDOCAINE
     Indication: PRODUCT USED FOR UNKNOWN INDICATION
     Route: 065
  4. GENTAMICIN SULFATE (ALC) [Suspect]
     Active Substance: GENTAMICIN SULFATE
     Indication: PREOPERATIVE CARE
     Route: 047
  5. PREDNISOLONE ACETATE. [Suspect]
     Active Substance: PREDNISOLONE ACETATE
     Indication: POSTOPERATIVE CARE
     Route: 047
  6. BETADINE [Suspect]
     Active Substance: POVIDONE-IODINE
     Indication: POSTOPERATIVE CARE
     Route: 047

REACTIONS (6)
  - Endophthalmitis [Recovering/Resolving]
  - Vitritis [Unknown]
  - Anterior chamber fibrin [Recovering/Resolving]
  - Anterior chamber cell [Recovering/Resolving]
  - Hypopyon [Recovering/Resolving]
  - Eye pain [Recovering/Resolving]

NARRATIVE: CASE EVENT DATE: 20171222
